FAERS Safety Report 5063403-0 (Version None)
Quarter: 2006Q3

REPORT INFORMATION
  Report Type: 
  Country: None (occurrence: None)
  Receive Date: 20060727
  Receipt Date: 20040722
  Transmission Date: 20061208
  Serious: Yes (Death, Hospitalization)
  Sender: FDA-Public Use
  Company Number: IT-ROCHE-375066

PATIENT
  Age: 69 Year
  Sex: Female

DRUGS (4)
  1. INTERFERON ALFA-2A [Suspect]
     Indication: METASTATIC MALIGNANT MELANOMA
     Dosage: GIVEN ON DAYS 11 AND 18 IN A CYCLE OF 28 DAYS.
     Route: 058
  2. THYMOSIN ALPHA 1 [Suspect]
     Indication: METASTATIC MALIGNANT MELANOMA
     Dosage: GIVEN ON DAYS 8 TO 11 (1.6 MG) AND 15 TO 18 (3.2 MG)
     Route: 065
  3. DTIC-DOME [Suspect]
     Indication: METASTATIC MALIGNANT MELANOMA
     Route: 042
  4. DURAGESIC-100 [Concomitant]
     Indication: PAIN
     Dates: start: 20040515

REACTIONS (4)
  - ANAEMIA [None]
  - BONE PAIN [None]
  - FATIGUE [None]
  - METASTASES TO BONE [None]
